FAERS Safety Report 10018744 (Version 2)
Quarter: 2014Q2

REPORT INFORMATION
  Report Type: Spontaneous
  Country: GB (occurrence: GB)
  Receive Date: 20140318
  Receipt Date: 20140429
  Transmission Date: 20141212
  Serious: Yes (Other)
  Sender: FDA-Public Use
  Company Number: GB-B.I. PHARMACEUTICALS,INC./RIDGEFIELD-2014-BI-10984UK

PATIENT
  Age: 89 Year
  Sex: Female

DRUGS (6)
  1. PRADAXA [Suspect]
     Indication: ATRIAL FIBRILLATION
     Dosage: 220 MG
     Route: 048
     Dates: end: 20140224
  2. METOLAZONE [Concomitant]
     Indication: DIURETIC THERAPY
     Route: 048
     Dates: start: 20131022, end: 20140214
  3. METOLAZONE [Concomitant]
     Indication: CARDIAC FAILURE CONGESTIVE
  4. BISOPROLOL [Concomitant]
     Indication: ATRIAL FIBRILLATION
     Route: 048
     Dates: start: 20131022
  5. BUTANIDE [Concomitant]
     Indication: DIURETIC THERAPY
     Dosage: 4 MG
     Route: 048
     Dates: start: 20131022
  6. DIAZEPAM [Concomitant]
     Indication: SEDATION
     Dosage: 6 MG
     Route: 048

REACTIONS (2)
  - Glomerular filtration rate decreased [Recovered/Resolved]
  - Haematoma [Recovered/Resolved]
